FAERS Safety Report 14705772 (Version 2)
Quarter: 2018Q2

REPORT INFORMATION
  Report Type: Report from Study
  Country: US (occurrence: US)
  Receive Date: 20180402
  Receipt Date: 20180430
  Transmission Date: 20180711
  Serious: Yes (Other)
  Sender: FDA-Public Use
  Company Number: US-009507513-1804USA000342

PATIENT
  Age: 63 Year
  Sex: Female
  Weight: 75.7 kg

DRUGS (2)
  1. DOXORUBICIN [Suspect]
     Active Substance: DOXORUBICIN
     Indication: BREAST CANCER
     Dosage: 60 MG/M2, 1 TIME EVERY 21 DAYS
     Route: 042
     Dates: start: 20180319, end: 20180319
  2. PEMBROLIZUMAB. [Suspect]
     Active Substance: PEMBROLIZUMAB
     Indication: BREAST CANCER
     Dosage: 200 MG, UNK
     Route: 042
     Dates: start: 20180319, end: 20180319

REACTIONS (3)
  - Drug hypersensitivity [Recovered/Resolved]
  - Inflammation [Recovered/Resolved]
  - Infusion related reaction [Recovered/Resolved]

NARRATIVE: CASE EVENT DATE: 20180319
